FAERS Safety Report 8011251-1 (Version None)
Quarter: 2011Q4

REPORT INFORMATION
  Report Type: 
  Country: None (occurrence: None)
  Receive Date: 20111227
  Receipt Date: 20111227
  Transmission Date: 20120403
  Serious: Yes (Other)
  Sender: FDA-Public Use
  Company Number: None

PATIENT
  Age: 50 Year
  Sex: Female
  Weight: 102.05 kg

DRUGS (1)
  1. RITUXAN [Suspect]
     Indication: RHEUMATOID ARTHRITIS
     Dosage: 1000MG
     Route: 041
     Dates: start: 20111102, end: 20111102

REACTIONS (4)
  - BLOOD PRESSURE DIASTOLIC INCREASED [None]
  - PRURITUS [None]
  - HOT FLUSH [None]
  - FLUSHING [None]
